FAERS Safety Report 7313768-1 (Version None)
Quarter: 2011Q1

REPORT INFORMATION
  Report Type: 
  Country: None (occurrence: None)
  Receive Date: 20110225
  Receipt Date: 20110223
  Transmission Date: 20110831
  Serious: Yes (Hospitalization)
  Sender: FDA-Public Use
  Company Number: DE-EISAI INC-E2020-08616-SPO-DE

PATIENT
  Age: 83 Year
  Sex: Female
  Weight: 72 kg

DRUGS (4)
  1. DIPIPERON FLUID [Concomitant]
     Dosage: 20 ML (UNKNOWN)
     Route: 048
  2. ARICEPT [Suspect]
     Route: 048
     Dates: start: 20061031, end: 20110121
  3. BICANORM [Concomitant]
     Dosage: 5 TABLETS
     Route: 048
  4. DEKRISTOL 20000 I.U. [Concomitant]
     Route: 048

REACTIONS (2)
  - PYELONEPHRITIS [None]
  - DEHYDRATION [None]
